FAERS Safety Report 8779693 (Version 1)
Quarter: 2012Q4

REPORT INFORMATION
  Report Type: 
  Country: US (occurrence: US)
  Receive Date: 20120912
  Receipt Date: 20120912
  Transmission Date: 20130627
  Serious: No
  Sender: FDA-Public Use
  Company Number: US-TEVA-354558USA

PATIENT
  Sex: Female

DRUGS (2)
  1. QNASL [Suspect]
  2. CLARINEX [Concomitant]
     Route: 060

REACTIONS (3)
  - Dyspnoea [Recovered/Resolved]
  - Swelling face [Recovered/Resolved]
  - Rash [Recovered/Resolved]
